FAERS Safety Report 6726178-2 (Version None)
Quarter: 2010Q2

REPORT INFORMATION
  Report Type: 
  Country: None (occurrence: None)
  Receive Date: 20100514
  Receipt Date: 20100504
  Transmission Date: 20101027
  Serious: Yes (Hospitalization, Other)
  Sender: FDA-Public Use
  Company Number: US-PFIZER INC-2010024255

PATIENT
  Sex: Male
  Weight: 91 kg

DRUGS (8)
  1. TIKOSYN [Suspect]
     Indication: ATRIAL FIBRILLATION
     Dosage: 0.25 MG, 2X/DAY
     Route: 048
     Dates: start: 20091023, end: 20100207
  2. FK506 [Concomitant]
     Dosage: 2 MG, 2X/DAY
     Route: 048
  3. CELLCEPT [Concomitant]
     Dosage: 250 MG, 3X/DAY
     Route: 048
  4. TEGRETOL [Concomitant]
     Dosage: 200 MG, 3X/DAY
     Route: 048
  5. DICYCLOMINE [Concomitant]
     Dosage: 20 MG, 4X/DAY
  6. NEURONTIN [Concomitant]
     Dosage: 600 MG, 4X/DAY
     Route: 048
  7. NORVASC [Concomitant]
     Dosage: 10 MG, 1X/DAY
     Route: 048
  8. LEXAPRO [Concomitant]
     Dosage: 5 MG, UNK
     Route: 048

REACTIONS (9)
  - ACTIVATED PARTIAL THROMBOPLASTIN TIME PROLONGED [None]
  - BLOOD UREA INCREASED [None]
  - EXPOSURE TO TOXIC AGENT [None]
  - FATIGUE [None]
  - GAIT DISTURBANCE [None]
  - MENTAL STATUS CHANGES [None]
  - MYOCLONUS [None]
  - OEDEMA PERIPHERAL [None]
  - PROTHROMBIN TIME PROLONGED [None]
